FAERS Safety Report 10500961 (Version 1)
Quarter: 2014Q4

REPORT INFORMATION
  Report Type: Spontaneous
  Country: US (occurrence: None)
  Receive Date: 20141003
  Receipt Date: 20141003
  Transmission Date: 20150528
  Serious: Yes (Hospitalization, Disabling, Other)
  Sender: FDA-Public Use
  Company Number: None

PATIENT
  Age: 46 Year
  Sex: Female
  Weight: 61.24 kg

DRUGS (2)
  1. MONDAFINIL [Suspect]
     Active Substance: MODAFINIL
     Indication: FATIGUE
     Dosage: ONCE DAILY, TAKEN BY MOUTH
     Route: 048
     Dates: start: 20140728, end: 20140731
  2. MONDAFINIL [Suspect]
     Active Substance: MODAFINIL
     Indication: DEPRESSION
     Dosage: ONCE DAILY, TAKEN BY MOUTH
     Route: 048
     Dates: start: 20140728, end: 20140731

REACTIONS (4)
  - Ankle fracture [None]
  - Immobile [None]
  - Syncope [None]
  - Presyncope [None]

NARRATIVE: CASE EVENT DATE: 20140731
